FAERS Safety Report 6129968-2 (Version None)
Quarter: 2009Q1

REPORT INFORMATION
  Report Type: 
  Country: None (occurrence: None)
  Receive Date: 20090323
  Receipt Date: 20090323
  Transmission Date: 20090719
  Serious: Yes (Other)
  Sender: FDA-Public Use
  Company Number: None

PATIENT
  Age: 62 Year
  Sex: Male
  Weight: 71.6683 kg

DRUGS (1)
  1. LIPITOR [Suspect]
     Indication: BLOOD CHOLESTEROL INCREASED
     Dosage: 1 PILL PER DAY PO ABOUT 2 MONTHS
     Route: 048
     Dates: start: 20081218, end: 20090228

REACTIONS (2)
  - MUSCLE DISORDER [None]
  - MUSCLE SPASMS [None]
